FAERS Safety Report 24276451 (Version 1)
Quarter: 2024Q3

REPORT INFORMATION
  Report Type: Spontaneous
  Country: US (occurrence: US)
  Receive Date: 20240903
  Receipt Date: 20240903
  Transmission Date: 20241017
  Serious: No
  Sender: APOTEX
  Company Number: US-APOTEX-2024AP009842

PATIENT
  Age: 56 Year
  Sex: Female

DRUGS (8)
  1. DIVALPROEX SODIUM [Suspect]
     Active Substance: DIVALPROEX SODIUM
     Indication: Schizophrenia
     Dosage: 1250 MILLIGRAM, QD
     Route: 048
  2. HALOPERIDOL DECANOATE [Concomitant]
     Active Substance: HALOPERIDOL DECANOATE
     Indication: Schizophrenia
     Dosage: 150 MILLIGRAM, Q.M.T.
     Route: 030
  3. CLOZAPINE [Concomitant]
     Active Substance: CLOZAPINE
     Indication: Schizophrenia
     Dosage: 200 MILLIGRAM, Q.H.S.
     Route: 048
  4. CLOZAPINE [Concomitant]
     Active Substance: CLOZAPINE
     Dosage: 25 MILLIGRAM, Q.H.S.
     Route: 065
  5. LORAZEPAM [Concomitant]
     Active Substance: LORAZEPAM
     Indication: Catatonia
     Dosage: 2 MILLIGRAM, BID
     Route: 042
  6. LORAZEPAM [Concomitant]
     Active Substance: LORAZEPAM
     Dosage: 2 MILLIGRAM (2 DOSES)
     Route: 030
  7. LORAZEPAM [Concomitant]
     Active Substance: LORAZEPAM
     Dosage: 3 MILLIGRAM, QID
     Route: 042
  8. BENZTROPINE [Concomitant]
     Active Substance: BENZTROPINE
     Indication: Parkinsonism
     Dosage: 1 MILLIGRAM, BID
     Route: 042

REACTIONS (1)
  - Hyperammonaemia [Unknown]
